FAERS Safety Report 4973456-3 (Version None)
Quarter: 2006Q2

REPORT INFORMATION
  Report Type: 
  Country: None (occurrence: None)
  Receive Date: 20060413
  Receipt Date: 20060413
  Transmission Date: 20061013
  Serious: Yes (Hospitalization)
  Sender: FDA-Public Use
  Company Number: None

PATIENT
  Age: 78 Year
  Sex: Male
  Weight: 100 kg

DRUGS (16)
  1. WARFARIN SODIUM [Suspect]
     Dosage: 5 MG DAILY PO
     Route: 048
     Dates: start: 20060118
  2. WARFARIN SODIUM [Suspect]
     Dosage: 5 MG DAILY PO
     Route: 048
     Dates: start: 20060119
  3. ASPIRIN [Suspect]
     Indication: CARDIOVASCULAR EVENT PROPHYLAXIS
     Dosage: 81 MG PO DAILY
     Route: 048
  4. ATENOLOL [Concomitant]
  5. IRBESARTEN [Concomitant]
  6. OXYCODONE [Concomitant]
  7. PROTONIX [Concomitant]
  8. MIRAPEX [Concomitant]
  9. ZOCOR [Concomitant]
  10. DETROL LA [Concomitant]
  11. MOM [Concomitant]
  12. LASIX [Concomitant]
  13. CEFAZOLIN [Concomitant]
  14. TOBRAMYCIN [Concomitant]
  15. LEVAQUIN [Concomitant]
  16. ZOSYN [Concomitant]

REACTIONS (9)
  - BLOOD CREATININE INCREASED [None]
  - GASTRITIS EROSIVE [None]
  - HAEMATEMESIS [None]
  - HAEMATOCRIT DECREASED [None]
  - HAEMOGLOBIN DECREASED [None]
  - HIATUS HERNIA [None]
  - INTERNATIONAL NORMALISED RATIO DECREASED [None]
  - OESOPHAGITIS [None]
  - UPPER GASTROINTESTINAL HAEMORRHAGE [None]
